FAERS Safety Report 4312109-1 (Version None)
Quarter: 2004Q1

REPORT INFORMATION
  Report Type: 
  Country: None (occurrence: None)
  Receive Date: 20040303
  Receipt Date: 19971013
  Transmission Date: 20041129
  Serious: Yes (Death)
  Sender: FDA-Public Use
  Company Number: NL-JNJFOC -20031202535

PATIENT
  Age: 54 Year
  Sex: Male
  Weight: 54.8 kg

DRUGS (7)
  1. REMICADE [Suspect]
     Indication: RHEUMATOID ARTHRITIS
     Dosage: 3 MG/KG, INTRAVENOUS
     Route: 042
     Dates: start: 19931206
  2. PLACEBO (PLACEBO) LYOPHILIZED POWDER [Suspect]
     Indication: RHEUMATOID ARTHRITIS
     Dosage: INTRAVENOUS
     Route: 042
     Dates: start: 19931101
  3. PREDNISONE [Concomitant]
  4. DICLOFENAC SODIUM [Concomitant]
  5. ACETAMINOPHEN [Concomitant]
  6. CALCIUM (CALCIUM) [Concomitant]
  7. PULMICORT [Concomitant]

REACTIONS (1)
  - PNEUMONITIS [None]
